FAERS Safety Report 19767907 (Version 1)
Quarter: 2021Q3

REPORT INFORMATION
  Report Type: Spontaneous
  Country: US (occurrence: US)
  Receive Date: 20210831
  Receipt Date: 20210831
  Transmission Date: 20211014
  Serious: Yes (Other)
  Sender: FDA-Public Use
  Company Number: None

PATIENT
  Age: 53 Year
  Weight: 73.8 kg

DRUGS (4)
  1. VITAMIN D [Concomitant]
     Active Substance: VITAMIN D NOS
  2. REGEN?COV [Suspect]
     Active Substance: CASIRIVIMAB\IMDEVIMAB
     Indication: EXPOSURE TO SARS-COV-2
     Dates: start: 20210829, end: 20210829
  3. VITAMIN C [Concomitant]
     Active Substance: ASCORBIC ACID
  4. ZINC. [Concomitant]
     Active Substance: ZINC

REACTIONS (7)
  - Chest discomfort [None]
  - Urticaria [None]
  - Hypersensitivity [None]
  - Injection site mass [None]
  - Erythema [None]
  - Muscle spasms [None]
  - Presyncope [None]

NARRATIVE: CASE EVENT DATE: 20210829
